FAERS Safety Report 25233064 (Version 1)
Quarter: 2025Q2

REPORT INFORMATION
  Report Type: Spontaneous
  Country: US (occurrence: US)
  Receive Date: 20250424
  Receipt Date: 20250424
  Transmission Date: 20250717
  Serious: No
  Sender: NOVARTIS
  Company Number: US-002147023-NVSC2025US066889

PATIENT
  Age: 11 Year
  Sex: Female

DRUGS (1)
  1. ILARIS [Suspect]
     Active Substance: CANAKINUMAB
     Indication: Familial mediterranean fever
     Dosage: 100 MG, QMO
     Route: 065

REACTIONS (4)
  - Astigmatism [Unknown]
  - Visual impairment [Unknown]
  - Hypermetropia [Unknown]
  - Myopia [Unknown]
